FAERS Safety Report 18218834 (Version 3)
Quarter: 2024Q3

REPORT INFORMATION
  Report Type: Spontaneous
  Country: US (occurrence: US)
  Receive Date: 20200901
  Receipt Date: 20240808
  Transmission Date: 20241016
  Serious: No
  Sender: BIOGEN
  Company Number: US-BIOGEN-2020BI00918126

PATIENT
  Sex: Male

DRUGS (19)
  1. AVONEX [Suspect]
     Active Substance: INTERFERON BETA-1A
     Indication: Multiple sclerosis
     Route: 050
     Dates: start: 20050506, end: 20091229
  2. AVONEX [Suspect]
     Active Substance: INTERFERON BETA-1A
     Route: 050
     Dates: end: 2011
  3. AVONEX [Suspect]
     Active Substance: INTERFERON BETA-1A
  4. AVONEX [Suspect]
     Active Substance: INTERFERON BETA-1A
  5. AVONEX [Suspect]
     Active Substance: INTERFERON BETA-1A
  6. AVONEX [Suspect]
     Active Substance: INTERFERON BETA-1A
  7. AVONEX [Suspect]
     Active Substance: INTERFERON BETA-1A
  8. AVONEX [Suspect]
     Active Substance: INTERFERON BETA-1A
  9. AVONEX [Suspect]
     Active Substance: INTERFERON BETA-1A
  10. AVONEX [Suspect]
     Active Substance: INTERFERON BETA-1A
  11. AVONEX [Suspect]
     Active Substance: INTERFERON BETA-1A
  12. AVONEX [Suspect]
     Active Substance: INTERFERON BETA-1A
  13. AVONEX [Suspect]
     Active Substance: INTERFERON BETA-1A
  14. LIPITOR [Concomitant]
     Active Substance: ATORVASTATIN CALCIUM
     Route: 050
  15. PLAVIX [Concomitant]
     Active Substance: CLOPIDOGREL BISULFATE
     Route: 050
  16. ASPIRIN [Concomitant]
     Active Substance: ASPIRIN
     Route: 050
  17. FENOFIBRATE [Concomitant]
     Active Substance: FENOFIBRATE
     Route: 050
  18. SOLIFENACIN SUCCINATE [Concomitant]
     Active Substance: SOLIFENACIN SUCCINATE
     Route: 050
  19. DALFAMPRIDINE [Concomitant]
     Active Substance: DALFAMPRIDINE
     Dosage: ER
     Route: 050

REACTIONS (2)
  - Influenza like illness [Recovered/Resolved]
  - Multiple sclerosis relapse [Recovered/Resolved]
